FAERS Safety Report 10781355 (Version 1)
Quarter: 2015Q1

REPORT INFORMATION
  Report Type: Spontaneous
  Country: US (occurrence: None)
  Receive Date: 20150209
  Receipt Date: 20150209
  Transmission Date: 20150721
  Serious: Yes (Disabling)
  Sender: FDA-Public Use
  Company Number: None

PATIENT
  Age: 61 Year
  Sex: Female

DRUGS (1)
  1. ARIMIDEX [Suspect]
     Active Substance: ANASTROZOLE
     Indication: BREAST CANCER
     Route: 048
     Dates: start: 20140924, end: 20150102

REACTIONS (11)
  - Back pain [None]
  - Headache [None]
  - Chest pain [None]
  - Vision blurred [None]
  - Rash [None]
  - Cough [None]
  - Radiation injury [None]
  - Dizziness [None]
  - Pain in extremity [None]
  - Depression [None]
  - Tinnitus [None]

NARRATIVE: CASE EVENT DATE: 20141103
